FAERS Safety Report 4840014-0 (Version None)
Quarter: 2005Q4

REPORT INFORMATION
  Report Type: 
  Country: None (occurrence: None)
  Receive Date: 20051125
  Receipt Date: 20051111
  Transmission Date: 20060501
  Serious: Yes (Other)
  Sender: FDA-Public Use
  Company Number: US016357

PATIENT
  Age: 88 Year
  Sex: Female

DRUGS (7)
  1. TRISENOX [Suspect]
     Indication: ACUTE PROMYELOCYTIC LEUKAEMIA
     Dosage: 12 MG QD INTRAVENOUS DRIP
     Route: 042
     Dates: start: 20050412, end: 20050527
  2. MEXILETINE HYDROCHLORIDE [Concomitant]
  3. CEFEPIME DIHYDROCHLORIDE [Concomitant]
  4. VANCOMCYCIN HYDROCHLORIDE [Concomitant]
  5. CIPROFLOXACIN [Concomitant]
  6. AMPICILLIN SODIUM/SULBACTAM SODIUM [Concomitant]
  7. ARBEKACIN SULFATE [Concomitant]

REACTIONS (4)
  - ELECTROCARDIOGRAM QT PROLONGED [None]
  - HYPOAESTHESIA [None]
  - MUSCULAR WEAKNESS [None]
  - NEUROPATHY PERIPHERAL [None]
